FAERS Safety Report 11069256 (Version 1)
Quarter: 2015Q2

REPORT INFORMATION
  Report Type: Spontaneous
  Country: US (occurrence: US)
  Receive Date: 20150427
  Receipt Date: 20150427
  Transmission Date: 20150821
  Serious: Yes (Other)
  Sender: FDA-Public Use
  Company Number: US-BAYER-2015-154083

PATIENT
  Age: 54 Year
  Sex: Female

DRUGS (1)
  1. BAYER GENUINE ASPIRIN [Suspect]
     Active Substance: ASPIRIN

REACTIONS (4)
  - Menstrual disorder [Unknown]
  - Blood disorder [Unknown]
  - Uterine cancer [Unknown]
  - Intentional product misuse [Unknown]
